FAERS Safety Report 10495644 (Version 1)
Quarter: 2014Q3

REPORT INFORMATION
  Report Type: Spontaneous
  Country: US (occurrence: None)
  Receive Date: 20140815
  Receipt Date: 20140815
  Transmission Date: 20150326
  Serious: Yes (Other)
  Sender: FDA-Public Use
  Company Number: ADR-2014-00411

PATIENT
  Age: 47 Year
  Sex: Male

DRUGS (2)
  1. DILAUDID [Suspect]
     Active Substance: HYDROMORPHONE HYDROCHLORIDE
  2. BACLOFEN (375.0 MCG/ML) [Suspect]
     Active Substance: BACLOFEN

REACTIONS (2)
  - Diarrhoea [None]
  - Nausea [None]
